FAERS Safety Report 13292193 (Version 1)
Quarter: 2017Q1

REPORT INFORMATION
  Report Type: Spontaneous
  Country: US (occurrence: US)
  Receive Date: 20170303
  Receipt Date: 20170303
  Transmission Date: 20170428
  Serious: No
  Sender: FDA-Public Use
  Company Number: US-BAYER-2017-042015

PATIENT
  Sex: Female
  Weight: 73.4 kg

DRUGS (24)
  1. ALEVE [Suspect]
     Active Substance: NAPROXEN SODIUM
     Dosage: UNK
  2. WELLBUTRIN [Concomitant]
     Active Substance: BUPROPION HYDROCHLORIDE
  3. IMITREX [Concomitant]
     Active Substance: SUMATRIPTAN SUCCINATE
  4. DETROL LA [Concomitant]
     Active Substance: TOLTERODINE TARTRATE
     Dosage: 4 MG, QD
     Route: 048
  5. BLACK COHOSH [Concomitant]
     Active Substance: BLACK COHOSH
     Route: 048
  6. PROZAC [Concomitant]
     Active Substance: FLUOXETINE HYDROCHLORIDE
  7. PREMARIN [Concomitant]
     Active Substance: ESTROGENS, CONJUGATED
     Route: 067
  8. TERAZOL [Concomitant]
     Active Substance: TERCONAZOLE
     Route: 067
  9. VITAMIN D3 [Concomitant]
     Active Substance: CHOLECALCIFEROL
  10. ALDARA [Concomitant]
     Active Substance: IMIQUIMOD
  11. LIDODERM [Concomitant]
     Active Substance: LIDOCAINE
  12. BACTROBAN [Concomitant]
     Active Substance: MUPIROCIN\MUPIROCIN CALCIUM
     Route: 061
  13. PRILOSEC [Concomitant]
     Active Substance: OMEPRAZOLE MAGNESIUM
  14. METRONIDAZOLE. [Concomitant]
     Active Substance: METRONIDAZOLE
  15. REQUIP [Concomitant]
     Active Substance: ROPINIROLE HYDROCHLORIDE
  16. KLONOPIN [Concomitant]
     Active Substance: CLONAZEPAM
  17. AMBIEN [Concomitant]
     Active Substance: ZOLPIDEM TARTRATE
  18. ASPIRIN. [Concomitant]
     Active Substance: ASPIRIN
  19. TOPROL XL [Concomitant]
     Active Substance: METOPROLOL SUCCINATE
  20. OXYCODONE [Concomitant]
     Active Substance: OXYCODONE
  21. ZOMIG [Concomitant]
     Active Substance: ZOLMITRIPTAN
  22. ESTRACE [Concomitant]
     Active Substance: ESTRADIOL
  23. CONDYLOX [Concomitant]
     Active Substance: PODOFILOX
  24. ARISTOCORT [Concomitant]
     Active Substance: TRIAMCINOLONE DIACETATE

REACTIONS (1)
  - Drug hypersensitivity [Unknown]
